FAERS Safety Report 15850377 (Version 1)
Quarter: 2019Q1

REPORT INFORMATION
  Report Type: Other
  Country: CA (occurrence: CA)
  Receive Date: 20190121
  Receipt Date: 20190121
  Transmission Date: 20190417
  Serious: Yes (Other)
  Sender: FDA-Public Use
  Company Number: CA-DUCHESNAY INC.-2061521

PATIENT

DRUGS (7)
  1. LABETALOL [Suspect]
     Active Substance: LABETALOL\LABETALOL HYDROCHLORIDE
     Route: 064
  2. ERYTHROPOIETIN [Suspect]
     Active Substance: ERYTHROPOIETIN
     Route: 064
  3. ACETAMINOPHEN. [Suspect]
     Active Substance: ACETAMINOPHEN
     Route: 064
  4. PREDNISONE. [Suspect]
     Active Substance: PREDNISONE
     Route: 064
  5. DICLEGIS [Suspect]
     Active Substance: DOXYLAMINE SUCCINATE\PYRIDOXINE HYDROCHLORIDE
     Indication: FOETAL EXPOSURE DURING PREGNANCY
     Route: 064
  6. METHYLPREDNISOLONE. [Suspect]
     Active Substance: METHYLPREDNISOLONE
     Route: 064
  7. RITUXIMAB. [Suspect]
     Active Substance: RITUXIMAB
     Route: 064

REACTIONS (2)
  - Premature baby [Unknown]
  - Low birth weight baby [Unknown]
